FAERS Safety Report 5001551-1 (Version None)
Quarter: 2006Q2

REPORT INFORMATION
  Report Type: 
  Country: None (occurrence: None)
  Receive Date: 20060515
  Receipt Date: 20060412
  Transmission Date: 20061013
  Serious: Yes (Hospitalization)
  Sender: FDA-Public Use
  Company Number: US-SP-2006-00857

PATIENT
  Age: 85 Year
  Sex: Male

DRUGS (5)
  1. THERACYS [Suspect]
     Indication: BLADDER CANCER
     Route: 043
     Dates: start: 20060322
  2. THERACYS [Suspect]
     Route: 043
     Dates: start: 20060322
  3. THERACYS [Suspect]
     Route: 043
     Dates: start: 20060322
  4. RESERPINE [Concomitant]
  5. ADVIL [Concomitant]

REACTIONS (24)
  - ALANINE AMINOTRANSFERASE INCREASED [None]
  - ASPARTATE AMINOTRANSFERASE INCREASED [None]
  - ATRIAL FIBRILLATION [None]
  - BLOOD ALKALINE PHOSPHATASE INCREASED [None]
  - BLOOD BILIRUBIN INCREASED [None]
  - CHILLS [None]
  - CONFUSIONAL STATE [None]
  - CREATININE RENAL CLEARANCE INCREASED [None]
  - DEHYDRATION [None]
  - DEPRESSED LEVEL OF CONSCIOUSNESS [None]
  - DILATATION ATRIAL [None]
  - FATIGUE [None]
  - HYPERHIDROSIS [None]
  - HYPOTENSION [None]
  - LETHARGY [None]
  - LIVER FUNCTION TEST ABNORMAL [None]
  - LOBAR PNEUMONIA [None]
  - PYREXIA [None]
  - RESTRICTIVE PULMONARY DISEASE [None]
  - SEPSIS [None]
  - TACHYPNOEA [None]
  - URINE OUTPUT DECREASED [None]
  - VOMITING [None]
  - WHITE BLOOD CELL COUNT DECREASED [None]
